FAERS Safety Report 7887625 (Version 3)
Quarter: 2013Q2

REPORT INFORMATION
  Report Type: Spontaneous
  Country: US (occurrence: US)
  Receive Date: 20110406
  Receipt Date: 20130411
  Transmission Date: 20140414
  Serious: Yes (Hospitalization)
  Sender: FDA-Public Use
  Company Number: US-ASTRAZENECA-2010SE30112

PATIENT
  Age: 69 Year
  Sex: Female

DRUGS (28)
  1. TOPROL XL [Suspect]
     Indication: HYPERTENSION
     Route: 048
  2. CRESTOR [Suspect]
     Route: 048
  3. ZESTRIL [Suspect]
     Route: 048
  4. TEKTURNA [Concomitant]
  5. NIFEDIPINE [Concomitant]
  6. NIFEDIPINE [Concomitant]
  7. POTASSIUM CHLOR [Concomitant]
  8. PLAVIX [Concomitant]
     Dosage: 37-1/2 MG DAILY AT PM MEAL
  9. LEVOTHYROID [Concomitant]
  10. LEVOTHYROID [Concomitant]
     Dosage: 75 MCG AT NOON EVERYDAY
  11. LORATIDINE [Concomitant]
     Dosage: 1 DF EVERY AM, AS NEEDED
  12. ANTI GAS PILLS [Concomitant]
  13. ANTI GAS PILLS [Concomitant]
  14. SPIRONOLACTONE [Concomitant]
     Dosage: 1/2 TABLET TWICE DAILY
  15. AVAPRO [Concomitant]
  16. METOPROLOL TARTRATE [Concomitant]
  17. METOPROLOL TARTRATE [Concomitant]
  18. TRILEPTAL [Concomitant]
     Indication: BIPOLAR DISORDER
     Dosage: 300 MG DAILY (150MG AM AT MEAL TIME, 150 MG AT BET DIME)
  19. DOXEPIN [Concomitant]
     Indication: BIPOLAR DISORDER
  20. DIAZEPAM [Concomitant]
     Indication: BIPOLAR DISORDER
  21. LANTUS [Concomitant]
     Indication: DIABETES MELLITUS
     Dosage: 50 UNITS EVERY PM AT 8:00
  22. LANTUS [Concomitant]
     Indication: DIABETES MELLITUS
     Dosage: 65 UNITS EVERY PM AT 8:00
  23. HUMALOG [Concomitant]
     Indication: DIABETES MELLITUS
     Dosage: SLIDING SCALE 5 UNITS FOR EVERY 50 POINTS BEFORE MEALS AND AT BEDTIME
  24. LOSARTAN POTASSIUM [Concomitant]
     Dosage: 1 DF AT NOON DAILY
  25. FUROSEMIDE [Concomitant]
  26. HYDROCHLOROTHIAZIDE [Concomitant]
  27. CLONODINE [Concomitant]
  28. NOVOLOG [Concomitant]
     Indication: DIABETES MELLITUS
     Dosage: 4 TIMES PER DAY (NO MORE THAN 105 UNITS PER DAY, BEFORE MEALS AND AT BED TIME)

REACTIONS (2)
  - Hypotension [Unknown]
  - Drug hypersensitivity [Unknown]
